FAERS Safety Report 18168848 (Version 4)
Quarter: 2020Q4

REPORT INFORMATION
  Report Type: Spontaneous
  Country: US (occurrence: US)
  Receive Date: 20200819
  Receipt Date: 20201112
  Transmission Date: 20210113
  Serious: No
  Sender: FDA-Public Use
  Company Number: US-PFIZER INC-2020317776

PATIENT
  Age: 62 Year
  Sex: Female

DRUGS (1)
  1. BRAFTOVI [Suspect]
     Active Substance: ENCORAFENIB
     Indication: COLON CANCER
     Dosage: 300 MG, DAILY (75MG 120CT 300 MG PO ONCE DAILY)
     Route: 048
     Dates: start: 20200604, end: 20201105

REACTIONS (1)
  - Alopecia [Unknown]
